FAERS Safety Report 7034205-0 (Version None)
Quarter: 2010Q4

REPORT INFORMATION
  Report Type: 
  Country: None (occurrence: None)
  Receive Date: 20101008
  Receipt Date: 20101004
  Transmission Date: 20110411
  Serious: Yes (Other)
  Sender: FDA-Public Use
  Company Number: US-BIOGENIDEC-2010BI034040

PATIENT
  Age: 68 Year
  Sex: Male

DRUGS (1)
  1. TYSABRI [Suspect]
     Indication: MULTIPLE SCLEROSIS
     Route: 042
     Dates: start: 20080521, end: 20100420

REACTIONS (5)
  - AGRAPHIA [None]
  - BASAL CELL CARCINOMA [None]
  - DEAFNESS [None]
  - MEMORY IMPAIRMENT [None]
  - TUMOUR HAEMORRHAGE [None]
